FAERS Safety Report 5853259-8 (Version None)
Quarter: 2008Q3

REPORT INFORMATION
  Report Type: 
  Country: None (occurrence: None)
  Receive Date: 20080820
  Receipt Date: 20080808
  Transmission Date: 20090109
  Serious: Yes (Other)
  Sender: FDA-Public Use
  Company Number: DSU-2008-01042

PATIENT
  Age: 86 Year
  Sex: Female
  Weight: 117.4816 kg

DRUGS (8)
  1. BENICAR [Suspect]
     Indication: HYPERTENSION
     Dosage: 40 MG (40 MG, QD), PER ORAL
     Route: 048
     Dates: start: 20080618
  2. LEXAPRO (ESCITALOPRAM OXALATE) (TABLET) (ESCITALOPRAM OXALATE) [Concomitant]
  3. METOPROLOL TARTRATE (METOPROLOL TARTRATE) (TABLET) (METOPROLOL TARTRAT [Concomitant]
  4. HYDROCHLOROTHIAZIDE (HYDROCHLOROTHIAZIDE) (TABLET) (HYDROCHLOROTHIAZID [Concomitant]
  5. LEVOTHYROXINE (LEVOTHYROXINE) (TABLET) (LEVOTHYROXINE) [Concomitant]
  6. LASIX (FUROSEMIDE) (TABLET) (FUROSEMIDE) [Concomitant]
  7. CALTRATE (CALCIUM CARBONATE) (TABLET) (CALCIUM CARBONATE) [Concomitant]
  8. VITAMIN B12 (CYANOCOBALAMIN) (TABLET) (CYANOCOBALAMIN) [Concomitant]

REACTIONS (1)
  - BLOOD PRESSURE DECREASED [None]
